FAERS Safety Report 10189773 (Version 1)
Quarter: 2014Q2

REPORT INFORMATION
  Report Type: Spontaneous
  Country: US (occurrence: US)
  Receive Date: 20140522
  Receipt Date: 20140522
  Transmission Date: 20141212
  Serious: Yes (Other)
  Sender: FDA-Public Use
  Company Number: US-SANOFI-AVENTIS-2013SA046551

PATIENT
  Age: 19 Year
  Sex: Female

DRUGS (4)
  1. LANTUS SOLOSTAR [Suspect]
     Indication: TYPE 1 DIABETES MELLITUS
     Dosage: START DATE: 3-4 MONTHS AGO DOSE:31 UNIT(S)
     Route: 051
  2. SOLOSTAR [Suspect]
     Indication: TYPE 1 DIABETES MELLITUS
     Dosage: START DATE: 3-4 MONTHS AGO
  3. APIDRA SOLOSTAR [Suspect]
     Indication: TYPE 1 DIABETES MELLITUS
     Dosage: START DATE: 3-4 MONTHS AGO.
     Route: 058
  4. SOLOSTAR [Suspect]
     Indication: TYPE 1 DIABETES MELLITUS
     Dosage: START DATE: 3-4 MONTHS AGO

REACTIONS (5)
  - Unresponsive to stimuli [Recovered/Resolved]
  - Blood glucose decreased [Unknown]
  - Malaise [Unknown]
  - Feeling drunk [Unknown]
  - Blood glucose increased [Unknown]
